FAERS Safety Report 7820741-3 (Version None)
Quarter: 2011Q4

REPORT INFORMATION
  Report Type: 
  Country: None (occurrence: None)
  Receive Date: 20111013
  Receipt Date: 20110927
  Transmission Date: 20120403
  Serious: Yes (Hospitalization)
  Sender: FDA-Public Use
  Company Number: 2011MA014573

PATIENT
  Age: 36 Year
  Sex: Male

DRUGS (13)
  1. BICARBONATE (NO PREF. NAME) [Suspect]
     Indication: TOXICITY TO VARIOUS AGENTS
     Dosage: ;IV
     Route: 042
  2. POTASSIUM CHLORIDE [Suspect]
     Indication: TOXICITY TO VARIOUS AGENTS
     Dosage: IV
     Route: 042
  3. PREDNISONE TAB [Suspect]
     Indication: ASTHMA
     Dosage: 50 MG;1X;PO
     Route: 048
  4. CEFOTAXIME SODIUM [Suspect]
     Indication: SEPSIS
     Dosage: 1 GM;IX;IV
     Route: 042
  5. IPRATROPIUM BROMIDE [Suspect]
     Indication: ASTHMA
     Dosage: 500 UG; INH
     Route: 055
  6. ACETAMINOPHEN [Concomitant]
  7. ALBUTEROL SULFATE [Suspect]
     Indication: ASTHMA
     Dosage: 5 MG;TIW;INH
     Route: 055
  8. CLARITHROMYCIN [Suspect]
     Dosage: 250 MG; 1X;PO
     Route: 048
  9. DICLOFENAC-MISOPROSTOL (NO PREF. NAME) [Suspect]
     Dosage: 75 MG
  10. QUETIAPINE [Concomitant]
  11. FLUTICASONE PROPIONATE [Concomitant]
  12. MAGNESIUM SULFATE [Suspect]
     Dosage: 2 GM; ;IV
     Route: 042
  13. DICLOFENAC POTASSIUM [Concomitant]

REACTIONS (21)
  - ASTHMA [None]
  - WHEEZING [None]
  - SPEECH DISORDER [None]
  - PRODUCTIVE COUGH [None]
  - CHEST PAIN [None]
  - RESPIRATORY RATE INCREASED [None]
  - PYREXIA [None]
  - RESPIRATORY DISTRESS [None]
  - BLOOD LACTIC ACID INCREASED [None]
  - CHILLS [None]
  - ANXIETY [None]
  - BLOOD POTASSIUM DECREASED [None]
  - RESPIRATORY TRACT IRRITATION [None]
  - TACHYPNOEA [None]
  - METABOLIC ACIDOSIS [None]
  - LACTIC ACIDOSIS [None]
  - DYSPNOEA [None]
  - BLOOD GLUCOSE INCREASED [None]
  - VENTRICULAR HYPERTROPHY [None]
  - RESPIRATORY ALKALOSIS [None]
  - BUNDLE BRANCH BLOCK RIGHT [None]
